FAERS Safety Report 8225797-4 (Version None)
Quarter: 2012Q1

REPORT INFORMATION
  Report Type: 
  Country: None (occurrence: None)
  Receive Date: 20120321
  Receipt Date: 20120319
  Transmission Date: 20120608
  Serious: Yes (Life-Threatening, Other)
  Sender: FDA-Public Use
  Company Number: TR-PFIZER INC-2012066934

PATIENT
  Age: 59 Year
  Sex: Female

DRUGS (4)
  1. SERTRALINE HYDROCHLORIDE [Concomitant]
  2. GENTAMICIN [Concomitant]
  3. LYRICA [Suspect]
     Indication: TOXIC NEUROPATHY
     Dosage: 75 UNK, UNK
     Route: 048
     Dates: start: 20070101
  4. LYRICA [Suspect]
     Dosage: 225 UNK, UNK
     Route: 048
     Dates: start: 20070101

REACTIONS (5)
  - BONE MARROW FAILURE [None]
  - HAEMOGLOBIN DECREASED [None]
  - WHITE BLOOD CELL COUNT DECREASED [None]
  - PLATELET COUNT DECREASED [None]
  - LYMPHOCYTE PERCENTAGE INCREASED [None]
